FAERS Safety Report 6233531-2 (Version None)
Quarter: 2009Q2

REPORT INFORMATION
  Report Type: 
  Country: None (occurrence: None)
  Receive Date: 20090617
  Receipt Date: 20090612
  Transmission Date: 20091009
  Serious: Yes (Death)
  Sender: FDA-Public Use
  Company Number: JP-SANOFI-SYNTHELABO-F01200900565

PATIENT
  Sex: Male
  Weight: 63.9 kg

DRUGS (13)
  1. BLOPRESS [Concomitant]
     Dosage: 4 MG
     Route: 048
     Dates: start: 20081122, end: 20081201
  2. BLOPRESS [Concomitant]
     Dosage: 8 MG
     Route: 048
     Dates: start: 20081207, end: 20081221
  3. BLOPRESS [Concomitant]
     Dosage: 4 MG
     Route: 048
     Dates: start: 20081222
  4. NICORANDIL [Concomitant]
     Indication: ACUTE MYOCARDIAL INFARCTION
     Route: 048
     Dates: start: 20081207
  5. LANIRAPID [Concomitant]
     Dosage: 0.1 MG
     Route: 048
     Dates: start: 20081130
  6. ALDACTONE [Concomitant]
     Dosage: 25 MG
     Route: 048
     Dates: start: 20081130
  7. LASIX [Concomitant]
     Route: 048
     Dates: start: 20081122, end: 20081129
  8. LASIX [Concomitant]
     Dosage: 40 MG
     Route: 048
     Dates: start: 20081201
  9. ASPIRIN [Concomitant]
     Indication: ACUTE MYOCARDIAL INFARCTION
     Dosage: 100 MG
     Route: 048
     Dates: start: 20081122
  10. CLOPIDOGREL [Suspect]
     Indication: ACUTE CORONARY SYNDROME
     Dosage: STARTING DOSE 300 MG
     Route: 048
     Dates: start: 20081129, end: 20081129
  11. CLOPIDOGREL [Suspect]
     Indication: ACUTE MYOCARDIAL INFARCTION
     Dosage: STARTING DOSE 300 MG
     Route: 048
     Dates: start: 20081129, end: 20081129
  12. CLOPIDOGREL [Suspect]
     Dosage: MAINTENANCE DOSE
     Route: 048
     Dates: start: 20081130
  13. CLOPIDOGREL [Suspect]
     Dosage: MAINTENANCE DOSE
     Route: 048
     Dates: start: 20081130

REACTIONS (1)
  - DEATH [None]
